FAERS Safety Report 9769428 (Version 1)
Quarter: 2013Q3

REPORT INFORMATION
  Report Type: Spontaneous
  Country: US (occurrence: None)
  Receive Date: 20130909
  Receipt Date: 20130909
  Transmission Date: 20140515
  Serious: Yes (Other)
  Sender: FDA-Public Use
  Company Number: 2013MK005504

PATIENT
  Sex: Female

DRUGS (2)
  1. NORGESTIMATE AND ETHINYL ESTRADIOL [Suspect]
     Indication: CONTRACEPTION
     Route: 048
     Dates: start: 2010
  2. POTASSIUM (POTASSIUM) [Concomitant]

REACTIONS (4)
  - Pregnancy on oral contraceptive [None]
  - Caesarean section [None]
  - Exposure during pregnancy [None]
  - Haemorrhage [None]
